FAERS Safety Report 7356551-3 (Version None)
Quarter: 2011Q1

REPORT INFORMATION
  Report Type: 
  Country: None (occurrence: None)
  Receive Date: 20110316
  Receipt Date: 20110302
  Transmission Date: 20110831
  Serious: Yes (Hospitalization)
  Sender: FDA-Public Use
  Company Number: PHHY2011CH17331

PATIENT
  Age: 66 Year
  Sex: Male

DRUGS (9)
  1. TEGRETOL [Suspect]
     Dosage: 1200 MG DAILY
     Route: 048
     Dates: end: 20110208
  2. TRANSTEC [Concomitant]
     Dosage: UNK
     Route: 048
     Dates: start: 20110205
  3. ENALAPRIL MALEATE [Concomitant]
     Dosage: 40 MG DAILY
     Route: 048
     Dates: start: 20110112, end: 20110201
  4. DEPAKENE [Concomitant]
     Dosage: 2000 MG DAILY
     Route: 048
     Dates: start: 20110209
  5. AZITHROMYCIN [Concomitant]
     Dosage: UNK
     Dates: end: 20110101
  6. SORTIS [Suspect]
     Dosage: 10 MG DAILY
     Route: 048
  7. ADALAT CC [Suspect]
     Indication: HYPERTENSION
     Dosage: 30 MG DAILY
     Route: 048
     Dates: start: 20110112, end: 20110201
  8. DEPAKENE [Concomitant]
     Dosage: 2500 MG DAILY
     Route: 048
     Dates: end: 20110208
  9. TEGRETOL [Suspect]
     Dosage: 800 MG DAILY
     Route: 048
     Dates: start: 20110209

REACTIONS (6)
  - CHEST PAIN [None]
  - DRUG LEVEL INCREASED [None]
  - PYREXIA [None]
  - ACCIDENTAL OVERDOSE [None]
  - ATAXIA [None]
  - CONFUSIONAL STATE [None]
